FAERS Safety Report 4508363-3 (Version None)
Quarter: 2004Q4

REPORT INFORMATION
  Report Type: 
  Country: None (occurrence: None)
  Receive Date: 20041123
  Receipt Date: 20040119
  Transmission Date: 20050328
  Serious: No
  Sender: FDA-Public Use
  Company Number: US-GLAXOSMITHKLINE-A0493971A

PATIENT
  Sex: Female

DRUGS (4)
  1. WELLBUTRIN [Suspect]
     Indication: DEPRESSION
     Dosage: 225MG PER DAY
     Route: 048
     Dates: start: 20030501, end: 20030601
  2. WELLBUTRIN [Suspect]
     Dosage: 100MG PER DAY
     Route: 048
     Dates: start: 20031101
  3. LEXAPRO [Concomitant]
  4. OXIZOLE [Concomitant]

REACTIONS (4)
  - BLOOD PRESSURE INCREASED [None]
  - FATIGUE [None]
  - PALPITATIONS [None]
  - VOMITING [None]
